FAERS Safety Report 19828482 (Version 5)
Quarter: 2022Q3

REPORT INFORMATION
  Report Type: Spontaneous
  Country: US (occurrence: US)
  Receive Date: 20210914
  Receipt Date: 20220824
  Transmission Date: 20221027
  Serious: No
  Sender: FDA-Public Use
  Company Number: US-TEVA-2021-US-1952146

PATIENT
  Sex: Female

DRUGS (2)
  1. IMATINIB [Suspect]
     Active Substance: IMATINIB
     Indication: Product used for unknown indication
     Route: 065
  2. IMATINIB [Suspect]
     Active Substance: IMATINIB
     Route: 065

REACTIONS (13)
  - Alopecia [Unknown]
  - Visual impairment [Unknown]
  - Stomatitis [Unknown]
  - Abdominal discomfort [Unknown]
  - Dysgeusia [Unknown]
  - Cardiac disorder [Unknown]
  - Rash [Unknown]
  - Product use complaint [Unknown]
  - Product taste abnormal [Unknown]
  - Product quality issue [Unknown]
  - Product coating issue [Unknown]
  - Product physical issue [Unknown]
  - Poor quality product administered [Unknown]
